FAERS Safety Report 24771847 (Version 1)
Quarter: 2024Q4

REPORT INFORMATION
  Report Type: Spontaneous
  Country: US (occurrence: None)
  Receive Date: 20241224
  Receipt Date: 20241224
  Transmission Date: 20250115
  Serious: Yes (Hospitalization)
  Sender: Public
  Company Number: None

PATIENT
  Age: 59 Year
  Sex: Male

DRUGS (9)
  1. AMBRISENTAN [Suspect]
     Active Substance: AMBRISENTAN
     Indication: Pulmonary arterial hypertension
     Dosage: FREQUENCY : DAILY;?
     Route: 048
     Dates: start: 202410
  2. REMUNITY CART W/FILL AID [Concomitant]
  3. C-FORMULATION A TOPICAL, [Concomitant]
  4. REPLACE REMTY WTY PUMP KIT [Concomitant]
  5. DEVICE [Concomitant]
     Active Substance: DEVICE
  6. REMODULIN [Concomitant]
     Active Substance: TREPROSTINIL
  7. PUMP REMUNITY STARTER KIT [Concomitant]
  8. LIDOCAINE/PRILOCAINE CRM [Concomitant]
  9. ENTECAVIR [Concomitant]
     Active Substance: ENTECAVIR

REACTIONS (3)
  - Pyrexia [None]
  - Diarrhoea [None]
  - Neuralgia [None]

NARRATIVE: CASE EVENT DATE: 20241219
